FAERS Safety Report 8577467-0 (Version None)
Quarter: 2012Q3

REPORT INFORMATION
  Report Type: 
  Country: None (occurrence: None)
  Receive Date: 20120807
  Receipt Date: 20120724
  Transmission Date: 20120928
  Serious: Yes (Hospitalization, Other)
  Sender: FDA-Public Use
  Company Number: JP-UCBSA-050218

PATIENT
  Age: 85 Year
  Sex: Male

DRUGS (12)
  1. CERTOLIZUMAB PEGOL [Suspect]
     Route: 058
  2. MUCOSTA TABLETS [Suspect]
     Dosage: DAILY DOSE:100 MG
     Route: 048
     Dates: start: 20110826, end: 20120125
  3. DIQUAFOSOL TETRASODIUM [Suspect]
     Indication: PUNCTATE KERATITIS
     Dosage: SUFFICIENT QUANTITY (QS), AS NEEDED
     Route: 047
     Dates: start: 20110719
  4. CERTOLIZUMAB PEGOL [Suspect]
     Indication: RHEUMATOID ARTHRITIS
     Route: 058
     Dates: start: 20091219, end: 20120114
  5. HYALEIN [Suspect]
     Indication: PUNCTATE KERATITIS
     Dosage: SUFFICIENT QUANTITY (QS), AS NEEDED
     Route: 047
     Dates: start: 20110719
  6. HYALEIN [Suspect]
     Indication: LACRIMATION DECREASED
     Dosage: SUFFICIENT QUANTITY (QS), AS NEEDED
     Route: 047
     Dates: start: 20110719
  7. ALLOPURINOL [Suspect]
     Indication: HYPERURICAEMIA
     Dosage: DAILY DOSE:50 MG
     Route: 048
  8. ALLOPURINOL [Suspect]
     Dosage: DAILY DOSE:100 MG
     Route: 048
  9. METHOTREXATE [Suspect]
     Indication: RHEUMATOID ARTHRITIS
     Dosage: 4 MG - 2 MG (1 WEEK)
     Route: 048
     Dates: start: 20110829
  10. CERTOLIZUMAB PEGOL [Suspect]
     Route: 058
  11. MUCOSTA TABLETS [Suspect]
     Indication: PROPHYLAXIS
     Route: 048
     Dates: start: 20120126
  12. DIQUAFOSOL TETRASODIUM [Suspect]
     Indication: LACRIMATION DECREASED
     Dosage: SUFFICIENT QUANTITY (QS), AS NEEDED
     Route: 047
     Dates: start: 20110719

REACTIONS (1)
  - GASTRIC CANCER [None]
